FAERS Safety Report 7234529-8 (Version None)
Quarter: 2011Q1

REPORT INFORMATION
  Report Type: 
  Country: None (occurrence: None)
  Receive Date: 20110119
  Receipt Date: 20110118
  Transmission Date: 20110831
  Serious: Yes (Hospitalization)
  Sender: FDA-Public Use
  Company Number: KR-BAYER-201041772GPV

PATIENT
  Age: 49 Year

DRUGS (10)
  1. EZETIMIBE/SAMVASTATIN [Concomitant]
     Dosage: AS USED DOSE: 20/10 MG
  2. GLUCOPHAGE XR [Concomitant]
  3. UNKNOWN DRUG [Concomitant]
  4. ASPIRIN [Concomitant]
  5. GLUCOBAY [Suspect]
     Route: 048
  6. CONCOR [Concomitant]
  7. GLUCOBAY [Concomitant]
  8. ZANIDIP [Concomitant]
  9. ISOTRIL [Concomitant]
  10. GLICLAZIDE [Concomitant]

REACTIONS (2)
  - HEPATIC ENZYME INCREASED [None]
  - HYPERGLYCAEMIA [None]
